FAERS Safety Report 6389041-5 (Version None)
Quarter: 2009Q4

REPORT INFORMATION
  Report Type: 
  Country: None (occurrence: None)
  Receive Date: 20091001
  Receipt Date: 20090923
  Transmission Date: 20100525
  Serious: Yes (Death, Hospitalization, Other)
  Sender: FDA-Public Use
  Company Number: ADR32492009

PATIENT
  Age: 71 Year
  Sex: Female

DRUGS (7)
  1. METFORMIN HYDROCHLORIDE [Suspect]
     Dosage: 500 MG-- 1/DAY
  2. CAPECITABINE [Concomitant]
  3. ETAMSYLATE [Concomitant]
  4. LANSOPRAZOLE [Concomitant]
  5. PARACETAMOL [Concomitant]
  6. TRANEXAMIC ACID [Concomitant]
  7. THEOPHYLLINE [Concomitant]

REACTIONS (6)
  - ANAEMIA [None]
  - GASTRIC CANCER [None]
  - MALIGNANT NEOPLASM PROGRESSION [None]
  - MELAENA [None]
  - RECTAL HAEMORRHAGE [None]
  - SEPSIS [None]
